FAERS Safety Report 18571977 (Version 1)
Quarter: 2020Q4

REPORT INFORMATION
  Report Type: Report from Study
  Country: NL (occurrence: NL)
  Receive Date: 20201202
  Receipt Date: 20201202
  Transmission Date: 20210114
  Serious: Yes (Hospitalization, Other)
  Sender: FDA-Public Use
  Company Number: NVSC2020NL316723

PATIENT
  Age: 66 Year
  Sex: Female

DRUGS (3)
  1. SANDOSTATINE LAR [Suspect]
     Active Substance: OCTREOTIDE ACETATE
  2. SANDOSTATINE LAR [Suspect]
     Active Substance: OCTREOTIDE ACETATE
  3. SANDOSTATINE LAR [Suspect]
     Active Substance: OCTREOTIDE ACETATE
     Indication: NEUROENDOCRINE TUMOUR
     Dosage: UNK, Q4W (1.00 X PER 4 WEEKS)
     Route: 030

REACTIONS (4)
  - Nephrolithiasis [Unknown]
  - Renal pain [Recovered/Resolved with Sequelae]
  - Back pain [Unknown]
  - Flank pain [Unknown]

NARRATIVE: CASE EVENT DATE: 20201117
